FAERS Safety Report 17003432 (Version 2)
Quarter: 2020Q1

REPORT INFORMATION
  Report Type: Spontaneous
  Country: FR (occurrence: FR)
  Receive Date: 20191107
  Receipt Date: 20200323
  Transmission Date: 20200409
  Serious: Yes (Other)
  Sender: FDA-Public Use
  Company Number: FR-EMD SERONO-E2B_90070652

PATIENT
  Age: 8 Year
  Sex: Female
  Weight: 26 kg

DRUGS (3)
  1. SAIZEN [Suspect]
     Active Substance: SOMATROPIN
     Indication: GROWTH FAILURE
     Dosage: 8MG/ML CARTRIDGE, SUSPECTED OVERDOSE OF 8 MG.
     Route: 058
     Dates: start: 201804, end: 201909
  2. SAIZEN [Suspect]
     Active Substance: SOMATROPIN
     Indication: GROWTH RETARDATION
     Dosage: RESUMPTION OF SAIZEN
     Dates: start: 20190916
  3. AERIUS                             /01009701/ [Concomitant]
     Active Substance: EBASTINE
     Indication: PRODUCT USED FOR UNKNOWN INDICATION

REACTIONS (13)
  - Device malfunction [Recovered/Resolved]
  - Pallor [Recovered/Resolved]
  - Abdominal pain upper [Recovering/Resolving]
  - Wrong technique in device usage process [Unknown]
  - Headache [Recovered/Resolved]
  - Vision blurred [Recovered/Resolved]
  - Product storage error [Unknown]
  - Injection site pain [Recovering/Resolving]
  - Blood glucose abnormal [Recovering/Resolving]
  - Overdose [Unknown]
  - Off label use [Unknown]
  - Incorrect dose administered by device [Unknown]
  - Wrong technique in product usage process [Unknown]

NARRATIVE: CASE EVENT DATE: 201804
